FAERS Safety Report 8232403-1 (Version None)
Quarter: 2012Q1

REPORT INFORMATION
  Report Type: 
  Country: None (occurrence: None)
  Receive Date: 20120323
  Receipt Date: 20120319
  Transmission Date: 20120608
  Serious: Yes (Congenital Anomaly, Other)
  Sender: FDA-Public Use
  Company Number: DE-GLAXOSMITHKLINE-D0074933A

PATIENT
  Age: 3 Day
  Sex: Male
  Weight: 3.6 kg

DRUGS (3)
  1. LAMOTRIGINE [Suspect]
     Indication: EPILEPSY
     Dosage: 700MG PER DAY
     Route: 064
     Dates: start: 20091111, end: 20100811
  2. VIMPAT [Suspect]
     Indication: EPILEPSY
     Dosage: 100MG TWICE PER DAY
     Route: 064
     Dates: start: 20091111, end: 20100811
  3. FOLIC ACID [Concomitant]
     Indication: PROPHYLAXIS OF NEURAL TUBE DEFECT
     Dosage: 5MG PER DAY
     Route: 064

REACTIONS (4)
  - BRADYCARDIA NEONATAL [None]
  - COARCTATION OF THE AORTA [None]
  - ATRIAL SEPTAL DEFECT [None]
  - HYPERBILIRUBINAEMIA [None]
